FAERS Safety Report 8772424 (Version 2)
Quarter: 2012Q4

REPORT INFORMATION
  Report Type: 
  Country: BE (occurrence: BE)
  Receive Date: 20120905
  Receipt Date: 20121111
  Transmission Date: 20130627
  Serious: No
  Sender: FDA-Public Use
  Company Number: PHHY2012BE076332

PATIENT
  Age: 37 Year
  Sex: Female

DRUGS (2)
  1. TASIGNA [Suspect]
     Indication: CHRONIC MYELOID LEUKAEMIA
     Dosage: 800 mg, daily
     Dates: start: 20090402
  2. NEXIAM [Concomitant]

REACTIONS (1)
  - Exposure during pregnancy [Unknown]
